FAERS Safety Report 11413469 (Version 1)
Quarter: 2015Q3

REPORT INFORMATION
  Report Type: Spontaneous
  Country: US (occurrence: US)
  Receive Date: 20150821
  Receipt Date: 20150821
  Transmission Date: 20151125
  Serious: No
  Sender: FDA-Public Use
  Company Number: US-ELI_LILLY_AND_COMPANY-US201106000987

PATIENT
  Age: 87 Year
  Sex: Male

DRUGS (1)
  1. HUMULIN 70/30 [Suspect]
     Active Substance: INSULIN HUMAN
     Indication: DIABETES MELLITUS
     Dosage: 20 U, TID
     Dates: start: 1995

REACTIONS (4)
  - Dizziness [Unknown]
  - Burning sensation [Unknown]
  - Headache [Unknown]
  - Product tampering [Unknown]

NARRATIVE: CASE EVENT DATE: 20110530
